FAERS Safety Report 23113517 (Version 4)
Quarter: 2024Q3

REPORT INFORMATION
  Report Type: Report from Study
  Country: IL (occurrence: IL)
  Receive Date: 20231027
  Receipt Date: 20240712
  Transmission Date: 20241017
  Serious: Yes (Hospitalization)
  Sender: TAKEDA
  Company Number: IL-TAKEDA-2023TUS091046

PATIENT
  Age: 43 Year
  Sex: Female
  Weight: 84 kg

DRUGS (3)
  1. VELAGLUCERASE ALFA [Suspect]
     Active Substance: VELAGLUCERASE ALFA
     Indication: Gaucher^s disease
     Dosage: 15 INTERNATIONAL UNIT/KILOGRAM, Q2WEEKS
     Route: 065
     Dates: start: 20221128, end: 20230918
  2. HEPARIN [Concomitant]
     Active Substance: HEPARIN SODIUM
     Indication: Prophylaxis
     Dosage: UNK UNK, QD
     Route: 042
     Dates: start: 20231005, end: 20231005
  3. CHORIOGONADOTROPIN ALFA [Concomitant]
     Active Substance: CHORIOGONADOTROPIN ALFA
     Indication: Prophylaxis
     Dosage: 80 MILLIGRAM, BID
     Route: 065
     Dates: start: 20231006

REACTIONS (4)
  - COVID-19 [Recovered/Resolved]
  - Vertigo [Recovered/Resolved]
  - Visual impairment [Recovered/Resolved]
  - Speech disorder [Recovered/Resolved]

NARRATIVE: CASE EVENT DATE: 20230918
